FAERS Safety Report 17237037 (Version 3)
Quarter: 2020Q1

REPORT INFORMATION
  Report Type: Spontaneous
  Country: US (occurrence: US)
  Receive Date: 20200106
  Receipt Date: 20200303
  Transmission Date: 20200409
  Serious: No
  Sender: FDA-Public Use
  Company Number: US-PFIZER INC-2020000532

PATIENT
  Age: 58 Year
  Sex: Female
  Weight: 102.6 kg

DRUGS (3)
  1. EUCRISA [Suspect]
     Active Substance: CRISABOROLE
     Indication: DERMATITIS ATOPIC
  2. EUCRISA [Suspect]
     Active Substance: CRISABOROLE
     Indication: ECZEMA
     Dosage: UNK, 2X/DAY (2% STRENGTH OINTMENT APPLIED TO AFFECTED AREAS TWICE DAILY)
     Dates: start: 20191219
  3. TOPICORT [HYDROCORTISONE ACETATE] [Concomitant]
     Active Substance: HYDROCORTISONE ACETATE
     Indication: PSORIASIS
     Dosage: UNK

REACTIONS (1)
  - Drug ineffective [Unknown]
